FAERS Safety Report 13698365 (Version 2)
Quarter: 2017Q3

REPORT INFORMATION
  Report Type: Spontaneous
  Country: RU (occurrence: RU)
  Receive Date: 20170628
  Receipt Date: 20170712
  Transmission Date: 20171127
  Serious: Yes (Other)
  Sender: FDA-Public Use
  Company Number: RU-BAYER-2017-117877

PATIENT
  Age: 26 Year
  Sex: Female
  Weight: 52 kg

DRUGS (1)
  1. YAZ [Suspect]
     Active Substance: DROSPIRENONE\ETHINYL ESTRADIOL
     Indication: CONTRACEPTION
     Dosage: 1 DF, QD
     Route: 048
     Dates: start: 201610, end: 201703

REACTIONS (8)
  - Sinus tachycardia [Recovering/Resolving]
  - Bundle branch block right [None]
  - Dyspnoea [Recovering/Resolving]
  - Thrombosis [None]
  - Electrocardiogram P wave abnormal [None]
  - Chest pain [None]
  - Palpitations [Recovering/Resolving]
  - Erythema [Recovered/Resolved]

NARRATIVE: CASE EVENT DATE: 201703
